FAERS Safety Report 5327901-4 (Version None)
Quarter: 2007Q2

REPORT INFORMATION
  Report Type: 
  Country: None (occurrence: None)
  Receive Date: 20070517
  Receipt Date: 20070507
  Transmission Date: 20071010
  Serious: Yes (Other)
  Sender: FDA-Public Use
  Company Number: US-PFIZER INC-2007037577

PATIENT
  Sex: Female
  Weight: 67.1 kg

DRUGS (4)
  1. CHANTIX [Suspect]
     Indication: SMOKING CESSATION THERAPY
  2. LOPID [Concomitant]
  3. METFORMIN HCL [Concomitant]
  4. NICODERM CQ [Concomitant]
     Route: 062

REACTIONS (3)
  - DYSPEPSIA [None]
  - LUNG NEOPLASM MALIGNANT [None]
  - NAUSEA [None]
